FAERS Safety Report 19735807 (Version 1)
Quarter: 2021Q3

REPORT INFORMATION
  Report Type: Spontaneous
  Country: LT (occurrence: LT)
  Receive Date: 20210823
  Receipt Date: 20210823
  Transmission Date: 20211014
  Serious: Yes (Hospitalization)
  Sender: FDA-Public Use
  Company Number: LT-ACCORD-236021

PATIENT
  Age: 53 Year
  Sex: Female
  Weight: 94.7 kg

DRUGS (5)
  1. METFORMIN [Concomitant]
     Active Substance: METFORMIN HYDROCHLORIDE
     Indication: DIABETES MELLITUS
     Dosage: 1500 MG PER DAY
     Route: 048
     Dates: start: 20201001
  2. GLIPIZIDE. [Concomitant]
     Active Substance: GLIPIZIDE
     Indication: DIABETES MELLITUS
     Dosage: 100 MG PER DAY
     Route: 048
     Dates: start: 20201001
  3. TRULICITY [Concomitant]
     Active Substance: DULAGLUTIDE
     Indication: DIABETES MELLITUS
     Dosage: 1.5 MG ONCE IN A WEEK
     Route: 058
     Dates: start: 20201001
  4. METHOTREXATE. [Suspect]
     Active Substance: METHOTREXATE
     Indication: PSORIASIS
     Dosage: 50 MG/ML ONCE PER WEEK
     Route: 058
     Dates: start: 20191114, end: 20200922
  5. HYRIMOZ [Concomitant]
     Active Substance: ADALIMUMAB-ADAZ
     Indication: PSORIASIS
     Dosage: 40 MG ONCE IN 2 WEEKS
     Route: 058
     Dates: start: 20190828, end: 20201130

REACTIONS (3)
  - Dyspepsia [Recovered/Resolved]
  - Drug intolerance [Unknown]
  - Anaemia [Recovered/Resolved]

NARRATIVE: CASE EVENT DATE: 20200310
